FAERS Safety Report 6740269-1 (Version None)
Quarter: 2010Q2

REPORT INFORMATION
  Report Type: 
  Country: None (occurrence: None)
  Receive Date: 20100525
  Receipt Date: 20100517
  Transmission Date: 20101027
  Serious: Yes (Other)
  Sender: FDA-Public Use
  Company Number: JP-MERCK-1004USA04406

PATIENT
  Age: 64 Year
  Sex: Female

DRUGS (6)
  1. FOSAMAX [Suspect]
     Indication: OSTEOPOROSIS
     Route: 048
  2. SYMMETREL [Concomitant]
     Route: 048
  3. CABASER [Concomitant]
     Route: 048
  4. CARBIDOPA AND LEVODOPA [Concomitant]
     Route: 048
  5. REQUIP [Concomitant]
     Route: 048
  6. SELEGILINE HYDROCHLORIDE [Concomitant]
     Route: 048

REACTIONS (1)
  - OSTEOMYELITIS [None]
